FAERS Safety Report 23171043 (Version 1)
Quarter: 2023Q4

REPORT INFORMATION
  Report Type: Spontaneous
  Country: IN (occurrence: IN)
  Receive Date: 20231110
  Receipt Date: 20231110
  Transmission Date: 20240110
  Serious: Yes (Hospitalization)
  Sender: FDA-Public Use
  Company Number: IN-ABBOTT-2023A-1371869

PATIENT
  Age: 37 Year
  Sex: Female

DRUGS (2)
  1. LEVOTHYROXINE SODIUM [Suspect]
     Active Substance: LEVOTHYROXINE SODIUM
     Indication: Thyroid therapy
     Dosage: DISCONTINUED IN THE MIDDLE OF THE MONTH (EXACT DATE NOT MENTIONED)
     Route: 048
  2. LEVOTHYROXINE SODIUM [Suspect]
     Active Substance: LEVOTHYROXINE SODIUM
     Indication: Thyroid therapy
     Route: 048

REACTIONS (6)
  - Lower limb fracture [Unknown]
  - Pain [Unknown]
  - Acne [Unknown]
  - Miliaria [Unknown]
  - Road traffic accident [Unknown]
  - Thyroid hormones increased [Unknown]
